FAERS Safety Report 6091768-X (Version None)
Quarter: 2009Q1

REPORT INFORMATION
  Report Type: 
  Country: None (occurrence: None)
  Receive Date: 20090225
  Receipt Date: 20080530
  Transmission Date: 20090719
  Serious: No
  Sender: FDA-Public Use
  Company Number: A0730336A

PATIENT
  Age: 43 Year
  Sex: Female

DRUGS (6)
  1. VALTREX [Suspect]
     Indication: GENITAL HERPES
     Dosage: 1G AT NIGHT
     Route: 048
     Dates: start: 20080312
  2. LAMICTAL [Concomitant]
  3. XANAX [Concomitant]
  4. LUNESTA [Concomitant]
  5. ZEGERID [Concomitant]
  6. PREVACID [Concomitant]

REACTIONS (5)
  - ANGER [None]
  - DRUG INEFFECTIVE [None]
  - HEADACHE [None]
  - HERPES VIRUS INFECTION [None]
  - VULVOVAGINAL MYCOTIC INFECTION [None]
